FAERS Safety Report 4500241-9 (Version None)
Quarter: 2004Q4

REPORT INFORMATION
  Report Type: 
  Country: None (occurrence: None)
  Receive Date: 20041109
  Receipt Date: 20041026
  Transmission Date: 20050328
  Serious: Yes (Hospitalization)
  Sender: FDA-Public Use
  Company Number: BLOC000850

PATIENT
  Sex: Female

DRUGS (1)
  1. MYOBLOC (BOTULINIUM TOXIN TYPE B) [Suspect]
     Indication: MUSCLE SPASTICITY
     Dosage: INTRAMUSCULAR
     Route: 030

REACTIONS (8)
  - ABDOMINAL DISTENSION [None]
  - CLOSTRIDIAL INFECTION [None]
  - DEHYDRATION [None]
  - DRY MOUTH [None]
  - DYSPHAGIA [None]
  - NAUSEA [None]
  - VISION BLURRED [None]
  - VOMITING [None]
